FAERS Safety Report 11247006 (Version 2)
Quarter: 2015Q3

REPORT INFORMATION
  Report Type: Spontaneous
  Country: DZ (occurrence: DZ)
  Receive Date: 20150708
  Receipt Date: 20150814
  Transmission Date: 20151125
  Serious: Yes (Death)
  Sender: FDA-Public Use
  Company Number: DZ-JNJFOC-20150704565

PATIENT
  Age: 67 Year
  Sex: Male
  Weight: 70 kg

DRUGS (2)
  1. ZYTIGA [Suspect]
     Active Substance: ABIRATERONE ACETATE
     Indication: PROSTATE CANCER
     Dosage: 4BTABLETS ONCE PER DAY
     Route: 048
     Dates: start: 20150603, end: 20150618
  2. FIRMAGON [Concomitant]
     Active Substance: DEGARELIX ACETATE
     Dosage: ONCE PER MONTH
     Route: 058

REACTIONS (3)
  - Mental disorder [Unknown]
  - Vomiting [Fatal]
  - Altered state of consciousness [Fatal]

NARRATIVE: CASE EVENT DATE: 20150603
